FAERS Safety Report 6970988-3 (Version None)
Quarter: 2010Q3

REPORT INFORMATION
  Report Type: 
  Country: None (occurrence: None)
  Receive Date: 20100908
  Receipt Date: 20100830
  Transmission Date: 20110219
  Serious: Yes (Hospitalization, Other)
  Sender: FDA-Public Use
  Company Number: US-PFIZER INC-2009243465

PATIENT
  Sex: Female
  Weight: 49.433 kg

DRUGS (14)
  1. AZULFIDINE [Suspect]
     Indication: COLITIS ULCERATIVE
     Dosage: UNK
  2. SULFASALAZINE [Suspect]
     Indication: COLITIS ULCERATIVE
     Dosage: UNK
     Dates: end: 20100601
  3. SULFASALAZINE [Suspect]
  4. FLAGYL [Suspect]
  5. FLAGYL [Suspect]
  6. LISINOPRIL [Suspect]
     Indication: ATRIAL FIBRILLATION
     Dosage: UNK
     Route: 048
     Dates: start: 20100101
  7. CARDIZEM [Suspect]
     Indication: ATRIAL FIBRILLATION
     Dosage: UNK
     Dates: start: 20100101
  8. DIGOXIN [Suspect]
     Indication: ATRIAL FIBRILLATION
     Dosage: UNK
     Route: 048
     Dates: start: 20100101
  9. AMIODARONE [Suspect]
     Indication: ATRIAL FIBRILLATION
     Dosage: UNK
     Route: 042
     Dates: start: 20100101
  10. SYNTHROID [Suspect]
     Indication: THYROIDECTOMY
     Dosage: UNK
     Route: 048
     Dates: start: 20040101
  11. SYNTHROID [Suspect]
     Dosage: UNK
     Route: 048
     Dates: start: 20091201
  12. PREDNISONE [Suspect]
     Indication: POLYMYALGIA RHEUMATICA
  13. PREDNISONE [Suspect]
     Indication: COLITIS ULCERATIVE
  14. MACROBID [Suspect]
     Indication: SEPSIS
     Dosage: UNK
     Dates: start: 20100101

REACTIONS (23)
  - AFFECTIVE DISORDER [None]
  - APPETITE DISORDER [None]
  - ATRIAL FIBRILLATION [None]
  - BLOOD POTASSIUM DECREASED [None]
  - BONE DISORDER [None]
  - DEPRESSION [None]
  - DIZZINESS [None]
  - DRUG HYPERSENSITIVITY [None]
  - DRUG INTOLERANCE [None]
  - GENERAL PHYSICAL CONDITION ABNORMAL [None]
  - HYPOACUSIS [None]
  - MALAISE [None]
  - MUSCULAR WEAKNESS [None]
  - NEUROPATHY PERIPHERAL [None]
  - OSTEOPOROSIS [None]
  - PAIN [None]
  - POLYMYALGIA RHEUMATICA [None]
  - SEPSIS [None]
  - SURGERY [None]
  - THYROIDECTOMY [None]
  - TOOTH DISORDER [None]
  - VISION BLURRED [None]
  - WEIGHT ABNORMAL [None]
